FAERS Safety Report 4834971-6 (Version None)
Quarter: 2005Q4

REPORT INFORMATION
  Report Type: 
  Country: None (occurrence: None)
  Receive Date: 20051114
  Receipt Date: 20051103
  Transmission Date: 20060501
  Serious: Yes (Hospitalization)
  Sender: FDA-Public Use
  Company Number: TPA2005A01006

PATIENT
  Age: 58 Year
  Sex: Male

DRUGS (2)
  1. ACTOS [Suspect]
     Dosage: 15 MG, 1 IN 1 D, PER ORAL   : 30 MG, 1 IN 1 D, PER ORAL
     Route: 048
     Dates: end: 20050411
  2. ACTOS [Suspect]
     Dosage: 15 MG, 1 IN 1 D, PER ORAL   : 30 MG, 1 IN 1 D, PER ORAL
     Route: 048
     Dates: start: 20021001

REACTIONS (6)
  - CARDIAC FAILURE CONGESTIVE [None]
  - CORONARY ARTERY DISEASE [None]
  - GENERALISED OEDEMA [None]
  - OEDEMA PERIPHERAL [None]
  - TRICUSPID VALVE INCOMPETENCE [None]
  - VENTRICULAR DYSFUNCTION [None]
